FAERS Safety Report 6212122-3 (Version None)
Quarter: 2009Q2

REPORT INFORMATION
  Report Type: 
  Country: None (occurrence: None)
  Receive Date: 20090602
  Receipt Date: 20090522
  Transmission Date: 20091009
  Serious: Yes (Hospitalization, Other)
  Sender: FDA-Public Use
  Company Number: PHHY2009UY19900

PATIENT
  Age: 52 Year
  Sex: Female

DRUGS (2)
  1. ZOMETA [Suspect]
     Dosage: UNK
  2. TAMOXIFEN (^TMX^) [Concomitant]

REACTIONS (7)
  - BONE PAIN [None]
  - DENTAL IMPLANTATION [None]
  - MAXILLOFACIAL OPERATION [None]
  - MOUTH INJURY [None]
  - OSTEONECROSIS [None]
  - PAIN IN JAW [None]
  - TOOTH DISORDER [None]
